FAERS Safety Report 9505480 (Version 1)
Quarter: 2013Q1

REPORT INFORMATION
  Report Type: Spontaneous
  Country: US (occurrence: None)
  Receive Date: 20130220
  Receipt Date: 20130220
  Transmission Date: 20140127
  Serious: No
  Sender: FDA-Public Use
  Company Number: 1000040962

PATIENT
  Age: 71 Year
  Sex: Male

DRUGS (2)
  1. VIIBRYD (VILAZODONE HYDROCHLORIDE) [Suspect]
     Indication: DEPRESSION
     Dosage: (10 MG, 1 IN 1 D)
     Route: 048
     Dates: start: 20121201, end: 20121207
  2. VIIBRYD (VILAZODONE HYDROCHLORIDE) [Suspect]
     Indication: DEPRESSION
     Dosage: (20 MG, 1 IN 1 D)
     Route: 048
     Dates: start: 20121208, end: 20121208

REACTIONS (3)
  - Muscle tightness [None]
  - Musculoskeletal stiffness [None]
  - Pain in extremity [None]
